FAERS Safety Report 21752634 (Version 1)
Quarter: 2022Q4

REPORT INFORMATION
  Report Type: Spontaneous
  Country: JP (occurrence: JP)
  Receive Date: 20221220
  Receipt Date: 20221220
  Transmission Date: 20230113
  Serious: Yes (Hospitalization)
  Sender: FDA-Public Use
  Company Number: JP-CHUGAI-2022049947AA

PATIENT
  Age: 74 Year
  Sex: Female
  Weight: 32 kg

DRUGS (2)
  1. GAZYVA [Suspect]
     Active Substance: OBINUTUZUMAB
     Indication: Follicular lymphoma
     Dosage: 1000 MILLIGRAM/DAY
     Route: 042
     Dates: start: 20201009, end: 20220203
  2. BENDAMUSTINE HYDROCHLORIDE [Concomitant]
     Active Substance: BENDAMUSTINE HYDROCHLORIDE
     Indication: Follicular lymphoma
     Dosage: UNK
     Route: 041
     Dates: start: 20201006

REACTIONS (3)
  - Mouth ulceration [Recovered/Resolved]
  - Stomatitis [Unknown]
  - Pharyngitis [Unknown]

NARRATIVE: CASE EVENT DATE: 20210601
